FAERS Safety Report 4269978-3 (Version None)
Quarter: 2004Q1

REPORT INFORMATION
  Report Type: 
  Country: None (occurrence: None)
  Receive Date: 20040112
  Receipt Date: 20031229
  Transmission Date: 20041129
  Serious: Yes (Other)
  Sender: FDA-Public Use
  Company Number: HQWYE995931DEC03

PATIENT
  Sex: Female

DRUGS (1)
  1. ADVIL [Suspect]
     Dosage: ORAL
     Route: 048

REACTIONS (5)
  - DYSPNOEA [None]
  - EYE SWELLING [None]
  - OEDEMA PERIPHERAL [None]
  - SWOLLEN TONGUE [None]
  - VOMITING [None]
